FAERS Safety Report 13172020 (Version 1)
Quarter: 2017Q1

REPORT INFORMATION
  Report Type: Spontaneous
  Country: FR (occurrence: FR)
  Receive Date: 20170201
  Receipt Date: 20170201
  Transmission Date: 20170428
  Serious: Yes (Hospitalization)
  Sender: FDA-Public Use
  Company Number: FR-ROCHE-1887526

PATIENT
  Age: 71 Year
  Sex: Male

DRUGS (4)
  1. FOLINIC ACID [Concomitant]
     Active Substance: LEUCOVORIN
     Route: 065
     Dates: start: 20161202
  2. OXALIPLATINE [Suspect]
     Active Substance: OXALIPLATIN
     Indication: COLORECTAL ADENOCARCINOMA
     Route: 041
     Dates: start: 20161202
  3. AVASTIN [Suspect]
     Active Substance: BEVACIZUMAB
     Indication: COLORECTAL ADENOCARCINOMA
     Route: 041
     Dates: start: 20161216
  4. FLUOROURACILE ACCORD [Suspect]
     Active Substance: FLUOROURACIL
     Indication: COLORECTAL ADENOCARCINOMA
     Route: 041
     Dates: start: 20161202

REACTIONS (1)
  - Shock haemorrhagic [Recovered/Resolved]

NARRATIVE: CASE EVENT DATE: 20161226
